FAERS Safety Report 21338153 (Version 4)
Quarter: 2022Q4

REPORT INFORMATION
  Report Type: Report from Study
  Country: BR (occurrence: BR)
  Receive Date: 20220915
  Receipt Date: 20221019
  Transmission Date: 20230112
  Serious: Yes (Hospitalization, Other)
  Sender: FDA-Public Use
  Company Number: BR-JNJFOC-20220919886

PATIENT
  Age: 9 Year
  Sex: Male
  Weight: 26.5 kg

DRUGS (2)
  1. REMICADE [Suspect]
     Active Substance: INFLIXIMAB
     Indication: Colitis
     Route: 041
     Dates: start: 202107
  2. REMICADE [Suspect]
     Active Substance: INFLIXIMAB
     Dosage: 4 AMPULES
     Route: 041
     Dates: start: 202109

REACTIONS (7)
  - Bacteraemia [Unknown]
  - Catheterisation cardiac [Unknown]
  - Cytomegalovirus infection [Unknown]
  - Colitis ulcerative [Recovering/Resolving]
  - Off label use [Unknown]
  - Drug level decreased [Recovered/Resolved]
  - Drug ineffective [Unknown]

NARRATIVE: CASE EVENT DATE: 20210101
